FAERS Safety Report 9883348 (Version 2)
Quarter: 2014Q1

REPORT INFORMATION
  Report Type: Report from Study
  Country: JP (occurrence: JP)
  Receive Date: 20140210
  Receipt Date: 20140210
  Transmission Date: 20141002
  Serious: Yes (Other)
  Sender: FDA-Public Use
  Company Number: JP-ROCHE-1323444

PATIENT
  Age: 71 Year
  Sex: Female
  Weight: 82 kg

DRUGS (15)
  1. METHOXY POLYETHYLENE GLYCOL-EPOETIN BETA [Suspect]
     Indication: NEPHROGENIC ANAEMIA
     Route: 042
     Dates: start: 20120814
  2. BIO-THREE [Concomitant]
     Route: 048
  3. PROMAC (JAPAN) [Concomitant]
     Indication: PROPHYLAXIS
     Route: 048
  4. SENNOSIDE [Concomitant]
     Route: 048
  5. BAYASPIRIN [Concomitant]
     Route: 048
  6. MYSLEE [Concomitant]
     Indication: PROPHYLAXIS
     Route: 048
  7. RISUMIC [Concomitant]
     Dosage: IT IS DIALYZING IT.
     Route: 048
  8. CALTAN [Concomitant]
     Indication: DIABETIC NEPHROPATHY
     Route: 048
  9. ALLOID G [Concomitant]
     Route: 048
  10. TAKEPRON [Concomitant]
     Route: 048
  11. PLAVIX [Concomitant]
     Route: 048
  12. ASCORBIC ACID [Concomitant]
     Indication: PROPHYLAXIS
     Route: 042
  13. OXAROL [Concomitant]
     Route: 042
  14. NEUROTROPIN (JAPAN) [Concomitant]
     Route: 042
  15. ELCITONIN [Concomitant]
     Route: 030

REACTIONS (2)
  - Coronary artery stenosis [Recovered/Resolved]
  - Benign neoplasm [Recovered/Resolved]
